FAERS Safety Report 15221445 (Version 1)
Quarter: 2018Q3

REPORT INFORMATION
  Report Type: Spontaneous
  Country: GB (occurrence: GB)
  Receive Date: 20180731
  Receipt Date: 20180731
  Transmission Date: 20181010
  Serious: Yes (Disabling)
  Sender: FDA-Public Use
  Company Number: GB-CELGENEUS-GBR-20180707917

PATIENT
  Age: 71 Year
  Sex: Male

DRUGS (2)
  1. AZACITIDINE. [Suspect]
     Active Substance: AZACITIDINE
     Indication: CHRONIC MYELOMONOCYTIC LEUKAEMIA
     Route: 058
     Dates: start: 201707
  2. BETNOVATE [Concomitant]
     Active Substance: BETAMETHASONE
     Indication: ERYTHEMA
     Route: 065

REACTIONS (4)
  - Skin discolouration [Unknown]
  - Erythema [Unknown]
  - Skin exfoliation [Unknown]
  - Skin lesion [Unknown]

NARRATIVE: CASE EVENT DATE: 20180601
